FAERS Safety Report 16658377 (Version 1)
Quarter: 2019Q3

REPORT INFORMATION
  Report Type: Spontaneous
  Country: US (occurrence: US)
  Receive Date: 20190801
  Receipt Date: 20190801
  Transmission Date: 20191004
  Serious: Yes (Other)
  Sender: FDA-Public Use
  Company Number: None

PATIENT
  Age: 61 Year
  Sex: Female
  Weight: 54.9 kg

DRUGS (2)
  1. CLOBETASOL PROPIONATE CREAM [Suspect]
     Active Substance: CLOBETASOL PROPIONATE
     Indication: ECZEMA
     Dates: start: 20190624, end: 20190701
  2. UNSPECIFIED CREAM [Suspect]
     Active Substance: UNSPECIFIED INGREDIENT

REACTIONS (5)
  - Generalised erythema [None]
  - Skin exfoliation [None]
  - Skin reaction [None]
  - Pruritus generalised [None]
  - Skin burning sensation [None]

NARRATIVE: CASE EVENT DATE: 20190701
